FAERS Safety Report 20086715 (Version 2)
Quarter: 2021Q4

REPORT INFORMATION
  Report Type: Other
  Country: US (occurrence: US)
  Receive Date: 20211118
  Receipt Date: 20211208
  Transmission Date: 20220303
  Serious: Yes (Death)
  Sender: FDA-Public Use
  Company Number: US-TOLMAR, INC.-21US031447

PATIENT
  Sex: Male

DRUGS (1)
  1. ELIGARD [Suspect]
     Active Substance: LEUPROLIDE ACETATE
     Indication: Product used for unknown indication
     Dosage: 22.5 MILLIGRAM

REACTIONS (1)
  - Death [Fatal]
